FAERS Safety Report 9427234 (Version 1)
Quarter: 2013Q3

REPORT INFORMATION
  Report Type: Report from Study
  Country: US (occurrence: US)
  Receive Date: 20130730
  Receipt Date: 20130730
  Transmission Date: 20140515
  Serious: No
  Sender: FDA-Public Use
  Company Number: US-ABBOTT-12P-163-0967712-00

PATIENT
  Sex: Male
  Weight: 120.31 kg

DRUGS (5)
  1. NIASPAN (COATED) [Suspect]
     Indication: HIGH DENSITY LIPOPROTEIN DECREASED
     Dosage: 750MG AT BEDTIME
  2. NIASPAN (COATED) [Suspect]
     Indication: LOW DENSITY LIPOPROTEIN INCREASED
     Dates: start: 201205
  3. NIASPAN (COATED) [Suspect]
     Indication: BLOOD TRIGLYCERIDES ABNORMAL
  4. ZANTAC [Concomitant]
     Indication: PRODUCT USED FOR UNKNOWN INDICATION
     Dosage: AT NIGHT
  5. ASA [Concomitant]
     Indication: PRODUCT USED FOR UNKNOWN INDICATION
     Dosage: BEFORE NIASPAN

REACTIONS (3)
  - Skin disorder [Not Recovered/Not Resolved]
  - Hot flush [Not Recovered/Not Resolved]
  - Feeling hot [Not Recovered/Not Resolved]
